FAERS Safety Report 16416984 (Version 2)
Quarter: 2019Q2

REPORT INFORMATION
  Report Type: Spontaneous
  Country: US (occurrence: US)
  Receive Date: 20190611
  Receipt Date: 20190624
  Transmission Date: 20190711
  Serious: No
  Sender: FDA-Public Use
  Company Number: US-ELI_LILLY_AND_COMPANY-US201906000588

PATIENT
  Sex: Female

DRUGS (3)
  1. TALTZ [Suspect]
     Active Substance: IXEKIZUMAB
     Indication: PSORIASIS
     Dosage: UNK, UNKNOWN
     Route: 058
     Dates: start: 20190520
  2. HUMIRA [Concomitant]
     Active Substance: ADALIMUMAB
     Indication: PRODUCT USED FOR UNKNOWN INDICATION
     Dosage: UNK, UNKNOWN
     Route: 065
  3. TALTZ [Suspect]
     Active Substance: IXEKIZUMAB
     Dosage: 80 MG, UNKNOWN
     Route: 058
     Dates: start: 20190609

REACTIONS (7)
  - Tonsillitis [Recovered/Resolved]
  - Injection site warmth [Not Recovered/Not Resolved]
  - Injection site pruritus [Unknown]
  - Malaise [Unknown]
  - Injection site erythema [Not Recovered/Not Resolved]
  - Injection site pain [Unknown]
  - Injection site urticaria [Not Recovered/Not Resolved]

NARRATIVE: CASE EVENT DATE: 20190609
